FAERS Safety Report 22321258 (Version 10)
Quarter: 2024Q3

REPORT INFORMATION
  Report Type: Spontaneous
  Country: US (occurrence: US)
  Receive Date: 20230515
  Receipt Date: 20240712
  Transmission Date: 20241017
  Serious: Yes (Hospitalization, Other)
  Sender: PFIZER
  Company Number: US-PFIZER INC-PV202300085218

PATIENT
  Age: 66 Year
  Sex: Female
  Weight: 84.354 kg

DRUGS (32)
  1. IBRANCE [Suspect]
     Active Substance: PALBOCICLIB
     Indication: Breast cancer female
     Dosage: 100MG DAILY FOR 21 DAYS THEN 7 DAYS OFF/ Q DAY FOR 21 Q 28
     Route: 048
     Dates: start: 20230425
  2. IBRANCE [Suspect]
     Active Substance: PALBOCICLIB
     Dosage: 100MG FOR 21 DAYS ON AND 7 DAYS OFF
     Route: 048
     Dates: start: 20230716, end: 20240506
  3. IBRANCE [Suspect]
     Active Substance: PALBOCICLIB
     Dosage: 100 MG, DAILY
     Route: 048
  4. ALPRAZOLAM [Concomitant]
     Active Substance: ALPRAZOLAM
     Dosage: UNK
  5. LETROZOLE [Concomitant]
     Active Substance: LETROZOLE
     Dosage: UNK
  6. SERTRALINE [Concomitant]
     Active Substance: SERTRALINE HYDROCHLORIDE
     Dosage: UNK
  7. EZETIMIBE [Concomitant]
     Active Substance: EZETIMIBE
     Dosage: UNK
  8. NORCO [Concomitant]
     Active Substance: ACETAMINOPHEN\HYDROCODONE BITARTRATE
     Indication: Pain
     Dosage: 2 TAB 94 DEGREE PRN (AS NEEDED)
  9. OXYBUTYNIN [Concomitant]
     Active Substance: OXYBUTYNIN\OXYBUTYNIN CHLORIDE
     Dosage: UNK
  10. PRAVASTATIN [Concomitant]
     Active Substance: PRAVASTATIN
     Dosage: UNK
  11. CETIRIZINE [Concomitant]
     Active Substance: CETIRIZINE HYDROCHLORIDE
     Dosage: UNK
  12. DILTIAZEM [Concomitant]
     Active Substance: DILTIAZEM
     Dosage: UNK
  13. ACETAMINOPHEN\HYDROCODONE [Concomitant]
     Active Substance: ACETAMINOPHEN\HYDROCODONE
     Dosage: UNK
  14. LATANOPROST [Concomitant]
     Active Substance: LATANOPROST
     Dosage: UNK
  15. LIDOCAINE [Concomitant]
     Active Substance: LIDOCAINE
     Dosage: UNK
  16. METHYLPHENIDATE [Concomitant]
     Active Substance: METHYLPHENIDATE
     Dosage: UNK
  17. NALOXONE [Concomitant]
     Active Substance: NALOXONE
     Dosage: UNK
  18. NITROFURANTOIN [Concomitant]
     Active Substance: NITROFURANTOIN
     Dosage: UNK
  19. ONDANSETRON [Concomitant]
     Active Substance: ONDANSETRON
     Dosage: UNK
  20. QUERCETIN [Concomitant]
     Active Substance: QUERCETIN
     Dosage: UNK
  21. SENNOSIDES A AND B [Concomitant]
     Active Substance: SENNOSIDES A AND B
     Dosage: UNK
  22. ZYRTEC [Concomitant]
     Active Substance: CETIRIZINE HYDROCHLORIDE
     Dosage: UNK
  23. SENNA PLUS [Concomitant]
     Active Substance: DOCUSATE SODIUM\SENNOSIDES\SENNOSIDES A AND B
     Dosage: UNK
  24. ZETIA [Concomitant]
     Active Substance: EZETIMIBE
     Indication: Blood cholesterol abnormal
     Dosage: 1 QHS (ONCE A DAY AT BED TIME)
  25. LACTULOSE [Concomitant]
     Active Substance: LACTULOSE
     Dosage: UNK
  26. XALATAN [Concomitant]
     Active Substance: LATANOPROST
     Indication: Anxiety
     Dosage: 1 - 2 BID (TWICE A DAY) PRN (AS NEEDED)
  27. RITALIN [Concomitant]
     Active Substance: METHYLPHENIDATE HYDROCHLORIDE
     Dosage: UNK
  28. MS CONTIN [Concomitant]
     Active Substance: MORPHINE SULFATE
     Dosage: UNK
  29. ZOLOFT [Concomitant]
     Active Substance: SERTRALINE HYDROCHLORIDE
     Indication: Depression
     Dosage: 100 MG, DAILY
  30. TIZANIDINE [Concomitant]
     Active Substance: TIZANIDINE
     Dosage: UNK
  31. CARDIZEM CD [Concomitant]
     Active Substance: DILTIAZEM HYDROCHLORIDE
     Indication: Hypertension
     Dosage: 240 MG, DAILY
  32. XANAX [Concomitant]
     Active Substance: ALPRAZOLAM
     Indication: Anxiety
     Dosage: 0.5 MG, 1 - 2 BID (TWICE A DAY) PRN (AS NEEDED)

REACTIONS (6)
  - Spinal disorder [Recovered/Resolved]
  - Intervertebral disc disorder [Unknown]
  - Compression fracture [Unknown]
  - Fatigue [Recovered/Resolved]
  - White blood cell count decreased [Recovered/Resolved]
  - Neoplasm progression [Recovered/Resolved]

NARRATIVE: CASE EVENT DATE: 20221121
